FAERS Safety Report 23720170 (Version 1)
Quarter: 2024Q2

REPORT INFORMATION
  Report Type: Spontaneous
  Country: EG (occurrence: EG)
  Receive Date: 20240408
  Receipt Date: 20240408
  Transmission Date: 20240716
  Serious: Yes (Other)
  Sender: FDA-Public Use
  Company Number: EG-HIKMA PHARMACEUTICALS-EG-H14001-24-02789

PATIENT

DRUGS (4)
  1. PACLITAXEL [Suspect]
     Active Substance: PACLITAXEL
     Dosage: 270 MILLIGRAM DILUTED IN 500 ML NORMAL SALINE OVER 2 HRS
     Route: 065
     Dates: start: 20240109
  2. PACLITAXEL [Suspect]
     Active Substance: PACLITAXEL
     Indication: Breast cancer
     Dosage: 300 MILLIGRAM, DILUTED IN 500 ML NORMAL SALINE OVER A TIME OF 2 HRS,3W
     Route: 065
     Dates: start: 20231127
  3. PACLITAXEL [Suspect]
     Active Substance: PACLITAXEL
     Dosage: 300 MILLIGRAM, DILUTED IN 500 ML NORMAL SALINE OVER A TIME OF 2 HRS,3W
     Route: 065
     Dates: start: 20231219
  4. CARBOPLATIN [Concomitant]
     Active Substance: CARBOPLATIN
     Indication: Breast cancer
     Dosage: 150 MILLIGRAM
     Route: 065
     Dates: start: 20231127

REACTIONS (2)
  - Hypokinesia [Unknown]
  - Myalgia [Unknown]

NARRATIVE: CASE EVENT DATE: 20231219
